FAERS Safety Report 16085443 (Version 3)
Quarter: 2019Q2

REPORT INFORMATION
  Report Type: Spontaneous
  Country: PL (occurrence: PL)
  Receive Date: 20190318
  Receipt Date: 20190417
  Transmission Date: 20190711
  Serious: Yes (Other)
  Sender: FDA-Public Use
  Company Number: PL-009507513-1903POL007062

PATIENT
  Sex: Male

DRUGS (1)
  1. PEMBROLIZUMAB. [Suspect]
     Active Substance: PEMBROLIZUMAB
     Dosage: 12 MONTHS OF TREATMENTS

REACTIONS (5)
  - Dyspnoea at rest [Unknown]
  - Pyrexia [Unknown]
  - Lung infiltration [Unknown]
  - Therapy partial responder [Unknown]
  - Respiratory failure [Unknown]
